FAERS Safety Report 5794675-2 (Version None)
Quarter: 2008Q2

REPORT INFORMATION
  Report Type: 
  Country: None (occurrence: None)
  Receive Date: 20080626
  Receipt Date: 20080611
  Transmission Date: 20081010
  Serious: Yes (Hospitalization)
  Sender: FDA-Public Use
  Company Number: DSJ-2008-07138

PATIENT
  Age: 79 Year
  Sex: Male
  Weight: 70 kg

DRUGS (6)
  1. OLMETEC (OLMESARTAN MEDOXOMIL) (TABLET) (OLMESARTAN MEDOXOMIL) [Suspect]
     Indication: HYPERTENSION
     Dosage: 20 MG (20 MG, L IN1 D), PER ORAL
     Route: 048
  2. ADALAT CR (NIFEDIPINE) (TABLET) (NIFEDIPINE) [Concomitant]
  3. JUVELA N (TOCOPHERYL NICOTINATE) (TABLET)(TOCOPHERYL NICOTINATE) [Concomitant]
  4. MUCOSTA (REBAMIPIDE) (TABLET) (REBAMIPIDE) [Concomitant]
  5. OPALMON (LIMAPROST) (TABLET)(LIMAPROST) [Concomitant]
  6. ZYLORIC (ALLOPURINOL) (TABLET)(ALLOPURINOL) [Concomitant]

REACTIONS (7)
  - ALTERED STATE OF CONSCIOUSNESS [None]
  - CARDIOMEGALY [None]
  - CHOLELITHIASIS [None]
  - COMA [None]
  - HAEMOGLOBIN DECREASED [None]
  - HYPOGLYCAEMIA [None]
  - RENAL ATROPHY [None]
